FAERS Safety Report 8333066-7 (Version None)
Quarter: 2012Q2

REPORT INFORMATION
  Report Type: 
  Country: None (occurrence: None)
  Receive Date: 20120503
  Receipt Date: 20120427
  Transmission Date: 20120825
  Serious: Yes (Other)
  Sender: FDA-Public Use
  Company Number: PHHY2012JP036725

PATIENT
  Sex: Female

DRUGS (1)
  1. DIOVAN [Suspect]
     Route: 048

REACTIONS (4)
  - EYE PAIN [None]
  - HEADACHE [None]
  - RETINAL HAEMORRHAGE [None]
  - HYPERTENSION [None]
